FAERS Safety Report 11237993 (Version 2)
Quarter: 2015Q3

REPORT INFORMATION
  Report Type: Report from Study
  Country: CO (occurrence: CO)
  Receive Date: 20150703
  Receipt Date: 20150709
  Transmission Date: 20151125
  Serious: Yes (Hospitalization, Disabling)
  Sender: FDA-Public Use
  Company Number: CO-AMGEN-COLSL2015064509

PATIENT
  Age: 87 Year
  Sex: Female
  Weight: 54 kg

DRUGS (1)
  1. NPLATE [Suspect]
     Active Substance: ROMIPLOSTIM
     Indication: IMMUNE THROMBOCYTOPENIC PURPURA
     Dosage: 50 MUG, QWK
     Route: 058
     Dates: start: 20150612

REACTIONS (6)
  - Vertigo [Recovering/Resolving]
  - Thrombocytopenia [Recovering/Resolving]
  - Syncope [Recovering/Resolving]
  - Haemoglobin abnormal [Unknown]
  - General physical health deterioration [Unknown]
  - Platelet count abnormal [Unknown]

NARRATIVE: CASE EVENT DATE: 20150626
